FAERS Safety Report 25368404 (Version 1)
Quarter: 2025Q2

REPORT INFORMATION
  Report Type: Spontaneous
  Country: US (occurrence: None)
  Receive Date: 20250527
  Receipt Date: 20250527
  Transmission Date: 20250716
  Serious: Yes (Other)
  Sender: FDA-CTU
  Company Number: None

PATIENT
  Age: 64 Year
  Sex: Male
  Weight: 69.75 kg

DRUGS (5)
  1. LEVOCETIRIZINE DIHYDROCHLORIDE [Suspect]
     Active Substance: LEVOCETIRIZINE DIHYDROCHLORIDE
     Indication: Multiple allergies
     Dosage: FREQUENCY : AT BEDTIME;?
     Route: 048
     Dates: start: 20250301, end: 20250524
  2. RITUXIMAB [Concomitant]
     Active Substance: RITUXIMAB
  3. D [Concomitant]
  4. FISH OIL [Concomitant]
     Active Substance: FISH OIL
  5. HERBALS\TURMERIC [Concomitant]
     Active Substance: HERBALS\TURMERIC

REACTIONS (3)
  - Nausea [None]
  - Dizziness [None]
  - Epistaxis [None]

NARRATIVE: CASE EVENT DATE: 20250526
